FAERS Safety Report 14562752 (Version 1)
Quarter: 2018Q1

REPORT INFORMATION
  Report Type: Spontaneous
  Country: IT (occurrence: IT)
  Receive Date: 20180222
  Receipt Date: 20180222
  Transmission Date: 20180509
  Serious: Yes (Hospitalization)
  Sender: FDA-Public Use
  Company Number: IT-PFIZER INC-2017141462

PATIENT
  Age: 63 Year
  Sex: Female

DRUGS (1)
  1. XANAX [Suspect]
     Active Substance: ALPRAZOLAM
     Dosage: UNK
     Route: 048

REACTIONS (5)
  - Drug abuse [Unknown]
  - Stereotypy [Unknown]
  - Bradyphrenia [Unknown]
  - Poverty of speech [Unknown]
  - Confusional state [Unknown]

NARRATIVE: CASE EVENT DATE: 20170123
